FAERS Safety Report 9046488 (Version 1)
Quarter: 2013Q1

REPORT INFORMATION
  Report Type: Spontaneous
  Country: US (occurrence: None)
  Receive Date: 20130128
  Receipt Date: 20130128
  Transmission Date: 20140127
  Serious: Yes (Death)
  Sender: FDA-Public Use
  Company Number: None

PATIENT
  Age: 82 Year
  Sex: Female
  Weight: 48.08 kg

DRUGS (1)
  1. NITROFURANTOIN [Suspect]
     Indication: CYSTITIS
     Route: 048
     Dates: start: 20111019, end: 20111113

REACTIONS (4)
  - Fatigue [None]
  - Cough [None]
  - Pneumonitis [None]
  - Pulmonary fibrosis [None]
